FAERS Safety Report 8421312-0 (Version None)
Quarter: 2012Q2

REPORT INFORMATION
  Report Type: 
  Country: None (occurrence: None)
  Receive Date: 20120608
  Receipt Date: 20120530
  Transmission Date: 20120825
  Serious: Yes (Hospitalization, Other)
  Sender: FDA-Public Use
  Company Number: JP-VERTEX PHARMACEUTICALS INC.-AE-2012-005200

PATIENT
  Age: 56 Year
  Sex: Male

DRUGS (11)
  1. NEORAL [Concomitant]
     Route: 048
  2. ALDACTONE [Concomitant]
     Route: 048
  3. CELLCEPT [Concomitant]
     Route: 048
  4. NORVASC [Concomitant]
     Route: 048
  5. TELAVIC (TELAPREVIR) [Suspect]
     Route: 048
     Dates: start: 20120314, end: 20120501
  6. LASIX [Concomitant]
     Route: 048
  7. TELAVIC (TELAPREVIR) [Suspect]
     Route: 048
     Dates: start: 20120226, end: 20120313
  8. RIBAVIRIN [Concomitant]
     Route: 048
     Dates: start: 20120222, end: 20120501
  9. URSO 250 [Concomitant]
     Route: 048
  10. TELAVIC (TELAPREVIR) [Suspect]
     Indication: HEPATITIS C
     Route: 048
     Dates: start: 20120222, end: 20120225
  11. PEGINTERFERON ALFA-2B [Concomitant]
     Route: 051
     Dates: start: 20120222, end: 20120501

REACTIONS (2)
  - MALAISE [None]
  - RENAL IMPAIRMENT [None]
